FAERS Safety Report 5209947-X (Version None)
Quarter: 2006Q4

REPORT INFORMATION
  Report Type: 
  Country: None (occurrence: None)
  Receive Date: 20061129
  Receipt Date: 20050418
  Transmission Date: 20070319
  Serious: Yes (Life-Threatening)
  Sender: FDA-Public Use
  Company Number: 2005AC00604

PATIENT
  Age: 63 Year
  Sex: Female

DRUGS (8)
  1. LISINOPRIL [Suspect]
  2. ATENOLOL [Concomitant]
  3. METHOTREXATE [Concomitant]
  4. CONJUGATED ESTROGENS [Concomitant]
  5. PAROXETINE HCL [Concomitant]
  6. FENTANYL [Concomitant]
  7. MIDAZOLAM HCL [Concomitant]
  8. SUCCINYLCHOLINE CHLORIDE [Concomitant]

REACTIONS (1)
  - ANGIONEUROTIC OEDEMA [None]
